FAERS Safety Report 12655135 (Version 1)
Quarter: 2016Q3

REPORT INFORMATION
  Report Type: Spontaneous
  Country: ES (occurrence: ES)
  Receive Date: 20160816
  Receipt Date: 20160816
  Transmission Date: 20161109
  Serious: Yes (Hospitalization, Other)
  Sender: FDA-Public Use
  Company Number: ES-APOTEX-2016AP010487

PATIENT
  Age: 65 Year
  Sex: Female

DRUGS (4)
  1. HYDROXYZINE [Interacting]
     Active Substance: HYDROXYZINE\HYDROXYZINE HYDROCHLORIDE
     Indication: PRURIGO
     Dosage: 25 MG/24 H
     Route: 048
  2. BISOPROLOL [Concomitant]
     Active Substance: BISOPROLOL
     Indication: ARRHYTHMIA
     Dosage: 2.5 MG/12 H
     Route: 065
  3. FLECAINIDA APOTEX COMPRIMIDOS EFG [Suspect]
     Active Substance: FLECAINIDE
     Indication: ARRHYTHMIA
     Dosage: 50 MG, Q.12H
     Route: 065
  4. LORATADINE. [Interacting]
     Active Substance: LORATADINE
     Indication: PRURIGO
     Dosage: 10 MG/24 H
     Route: 048

REACTIONS (6)
  - Torsade de pointes [Recovered/Resolved]
  - Drug interaction [Recovered/Resolved]
  - Ventricular fibrillation [Recovered/Resolved]
  - Potentiating drug interaction [Recovered/Resolved]
  - Electrocardiogram QT prolonged [Recovered/Resolved]
  - Cardiac arrest [Recovered/Resolved]
